FAERS Safety Report 5253680-5 (Version None)
Quarter: 2007Q1

REPORT INFORMATION
  Report Type: 
  Country: None (occurrence: None)
  Receive Date: 20070226
  Receipt Date: 20070209
  Transmission Date: 20070707
  Serious: Yes (Death)
  Sender: FDA-Public Use
  Company Number: 200702IM000079

PATIENT
  Sex: Female

DRUGS (3)
  1. ACTIMMUNE [Suspect]
     Indication: ZYGOMYCOSIS
  2. NEUPOGEN [Suspect]
  3. LIPID FORMULATION OF AMPHOTERICIN B [Suspect]

REACTIONS (1)
  - SEPTIC SHOCK [None]
